FAERS Safety Report 8564911-8 (Version None)
Quarter: 2012Q3

REPORT INFORMATION
  Report Type: 
  Country: None (occurrence: None)
  Receive Date: 20120723
  Receipt Date: 20120706
  Transmission Date: 20120928
  Serious: Yes (Other)
  Sender: FDA-Public Use
  Company Number: GGEL20120700865

PATIENT
  Age: 48 Year
  Sex: Female

DRUGS (1)
  1. LAMOTRIGINE [Suspect]
     Indication: PRODUCT USED FOR UNKNOWN INDICATION

REACTIONS (8)
  - STATUS EPILEPTICUS [None]
  - TACHYCARDIA [None]
  - CARDIOTOXICITY [None]
  - NODAL ARRHYTHMIA [None]
  - PULSE ABSENT [None]
  - CARDIAC ARREST [None]
  - OVERDOSE [None]
  - CIRCULATORY COLLAPSE [None]
